FAERS Safety Report 5519407-4 (Version None)
Quarter: 2007Q4

REPORT INFORMATION
  Report Type: 
  Country: None (occurrence: None)
  Receive Date: 20071116
  Receipt Date: 20071106
  Transmission Date: 20080405
  Serious: Yes (Death)
  Sender: FDA-Public Use
  Company Number: US-WYE-H01184707

PATIENT
  Sex: Male

DRUGS (2)
  1. CORDARONE [Suspect]
  2. ALLOPURINOL [Suspect]

REACTIONS (9)
  - DIZZINESS [None]
  - DYSPNOEA EXERTIONAL [None]
  - HEPATIC FAILURE [None]
  - LIBIDO DECREASED [None]
  - OCULAR ICTERUS [None]
  - ORTHOPNOEA [None]
  - RENAL FAILURE ACUTE [None]
  - SWELLING [None]
  - YELLOW SKIN [None]
